FAERS Safety Report 25501874 (Version 3)
Quarter: 2025Q3

REPORT INFORMATION
  Report Type: Spontaneous
  Country: US (occurrence: US)
  Receive Date: 20250702
  Receipt Date: 20250826
  Transmission Date: 20251021
  Serious: No
  Sender: SANDOZ
  Company Number: US-SANDOZ-SDZ2025US045877

PATIENT
  Age: 69 Year
  Sex: Female
  Weight: 83.9 kg

DRUGS (3)
  1. COMBIPATCH [Suspect]
     Active Substance: ESTRADIOL\NORETHINDRONE ACETATE
     Indication: Menopausal symptoms
     Dosage: 0.05/0.14 MG, TWICE A WEEK
     Route: 062
     Dates: start: 20250610, end: 20250625
  2. COMBIPATCH [Suspect]
     Active Substance: ESTRADIOL\NORETHINDRONE ACETATE
     Indication: Menopause
     Route: 062
     Dates: start: 202506, end: 20250624
  3. PHENTERMINE [Concomitant]
     Active Substance: PHENTERMINE
     Indication: Weight control
     Dosage: UNK, QOD,EVERY OTHER DAY
     Route: 065

REACTIONS (2)
  - Postmenopausal haemorrhage [Recovered/Resolved]
  - Nipple pain [Recovering/Resolving]

NARRATIVE: CASE EVENT DATE: 20250619
